FAERS Safety Report 15573282 (Version 2)
Quarter: 2018Q4

REPORT INFORMATION
  Report Type: Spontaneous
  Country: ZA (occurrence: ZA)
  Receive Date: 20181101
  Receipt Date: 20181105
  Transmission Date: 20190205
  Serious: No
  Sender: FDA-Public Use
  Company Number: ZA-AMGEN-ZAFSP2018152571

PATIENT
  Age: 67 Year
  Sex: Female
  Weight: 71.7 kg

DRUGS (2)
  1. COXFLAM [Concomitant]
     Active Substance: MELOXICAM
     Dosage: UNK
  2. ENBREL [Suspect]
     Active Substance: ETANERCEPT
     Indication: PRODUCT USED FOR UNKNOWN INDICATION
     Dosage: 50 MG, WEEKLY
     Route: 058

REACTIONS (3)
  - Blood creatinine abnormal [Unknown]
  - White blood cell count abnormal [Unknown]
  - HLA-B*27 positive [Unknown]

NARRATIVE: CASE EVENT DATE: 20181001
